FAERS Safety Report 24661432 (Version 4)
Quarter: 2025Q1

REPORT INFORMATION
  Report Type: Spontaneous
  Country: US (occurrence: US)
  Receive Date: 20241125
  Receipt Date: 20250109
  Transmission Date: 20250408
  Serious: Yes (Other)
  Sender: PFIZER
  Company Number: US-PFIZER INC-202400307571

PATIENT
  Age: 40 Year
  Sex: Male
  Weight: 78 kg

DRUGS (3)
  1. BOSULIF [Suspect]
     Active Substance: BOSUTINIB MONOHYDRATE
     Indication: Leukaemia
  2. BOSULIF [Suspect]
     Active Substance: BOSUTINIB MONOHYDRATE
     Dosage: 300 MG, 1X/DAY
     Route: 048
     Dates: start: 2024
  3. BOSULIF [Suspect]
     Active Substance: BOSUTINIB MONOHYDRATE
     Dosage: THREE TABLETS  DAILY WITH BREAKFAST
     Route: 048

REACTIONS (5)
  - Renal impairment [Unknown]
  - Hepatitis [Unknown]
  - Pancreatitis [Unknown]
  - Blood test abnormal [Unknown]
  - Renal pain [Unknown]

NARRATIVE: CASE EVENT DATE: 20240101
